FAERS Safety Report 13094887 (Version 1)
Quarter: 2017Q1

REPORT INFORMATION
  Report Type: Spontaneous
  Country: TR (occurrence: TR)
  Receive Date: 20170106
  Receipt Date: 20170106
  Transmission Date: 20170428
  Serious: Yes (Life-Threatening, Hospitalization, Other)
  Sender: FDA-Public Use
  Company Number: TR-BAUSCH-BL-2017-000153

PATIENT
  Age: 3 Month
  Sex: Male

DRUGS (1)
  1. BRIMONIDINE TARTRATE. [Suspect]
     Active Substance: BRIMONIDINE TARTRATE
     Indication: NASAL CONGESTION
     Dosage: APPROXIMATELY 1 CC CONTENT EYE DROP INSTILLED ACCIDENTALLY TO NARES
     Route: 065

REACTIONS (6)
  - Hypotonia [Recovered/Resolved]
  - Poisoning [Recovered/Resolved]
  - Hypothermia [Recovered/Resolved]
  - Respiratory failure [Recovered/Resolved]
  - Depressed level of consciousness [Recovered/Resolved]
  - Wrong drug administered [Recovered/Resolved]
